FAERS Safety Report 14128226 (Version 1)
Quarter: 2017Q4

REPORT INFORMATION
  Report Type: Spontaneous
  Country: US (occurrence: US)
  Receive Date: 20171025
  Receipt Date: 20171025
  Transmission Date: 20180321
  Serious: Yes (Disabling)
  Sender: FDA-Public Use
  Company Number: None

PATIENT
  Sex: Female
  Weight: 60.75 kg

DRUGS (13)
  1. ASPIRIN. [Concomitant]
     Active Substance: ASPIRIN
  2. WELLBUTRIN [Concomitant]
     Active Substance: BUPROPION HYDROCHLORIDE
  3. SYNTHROID [Concomitant]
     Active Substance: LEVOTHYROXINE SODIUM
  4. OMEGA 3 6 9 [Concomitant]
     Active Substance: FISH OIL
  5. EFFEXOR [Concomitant]
     Active Substance: VENLAFAXINE HYDROCHLORIDE
  6. GLOCOSAMINE [Concomitant]
  7. MULTIVITAMINS [Concomitant]
     Active Substance: VITAMINS
  8. NOVACAINE [Suspect]
     Active Substance: PROCAINE
     Indication: ENDODONTIC PROCEDURE
     Dosage: OTHER ROUTE:INJECTION INTO MOUTH AT GUM?
     Dates: start: 20171017, end: 20171017
  9. ADDERALL [Concomitant]
     Active Substance: AMPHETAMINE ASPARTATE\AMPHETAMINE SULFATE\DEXTROAMPHETAMINE SACCHARATE\DEXTROAMPHETAMINE SULFATE
  10. ARICEPT [Concomitant]
     Active Substance: DONEPEZIL HYDROCHLORIDE
  11. LAMICTAL [Concomitant]
     Active Substance: LAMOTRIGINE
  12. VITAMIN B12 [Concomitant]
     Active Substance: CYANOCOBALAMIN
  13. E [Concomitant]

REACTIONS (8)
  - Injection site pain [None]
  - Pain [None]
  - Swelling [None]
  - Impaired healing [None]
  - Headache [None]
  - Oral mucosal blistering [None]
  - Injection site swelling [None]
  - Sialoadenitis [None]

NARRATIVE: CASE EVENT DATE: 20171018
